FAERS Safety Report 8092064 (Version 10)
Quarter: 2012Q4

REPORT INFORMATION
  Report Type: 
  Country: CA (occurrence: CA)
  Receive Date: 20110816
  Receipt Date: 20121111
  Transmission Date: 20130627
  Serious: Yes (Other)
  Sender: FDA-Public Use
  Company Number: PHHY2011CA70795

PATIENT
  Age: 52 None
  Sex: Female

DRUGS (3)
  1. SANDOSTATIN LAR [Suspect]
     Indication: ACROMEGALY
     Dosage: 20 mg, every 4 weeks
     Route: 030
     Dates: start: 19991001
  2. SANDOSTATIN LAR [Suspect]
     Dosage: 20 mg, every 6 weeks
     Route: 030
  3. DETROL LA [Concomitant]

REACTIONS (34)
  - Cytomegalovirus gastrointestinal infection [Unknown]
  - Diverticulitis [Unknown]
  - Abdominal pain [Unknown]
  - Abdominal discomfort [Unknown]
  - Memory impairment [Unknown]
  - Haematemesis [Unknown]
  - Rectal haemorrhage [Unknown]
  - Fall [Unknown]
  - Sciatica [Unknown]
  - Urinary incontinence [Unknown]
  - Arthralgia [Recovering/Resolving]
  - Frustration [Unknown]
  - Gait disturbance [Unknown]
  - White blood cell count increased [Unknown]
  - Pyrexia [Unknown]
  - Paraesthesia [Not Recovered/Not Resolved]
  - Discomfort [Unknown]
  - Vomiting [Unknown]
  - Nausea [Unknown]
  - Diarrhoea [Unknown]
  - Pain [Not Recovered/Not Resolved]
  - Constipation [Unknown]
  - Heart rate increased [Unknown]
  - Fatigue [Unknown]
  - Hypotension [Unknown]
  - Night sweats [Unknown]
  - Musculoskeletal stiffness [Unknown]
  - Joint stiffness [Not Recovered/Not Resolved]
  - Malaise [Unknown]
  - Asthenia [Unknown]
  - Chills [Unknown]
  - Drug ineffective [Unknown]
  - Flushing [Unknown]
  - Hyperhidrosis [Unknown]
